FAERS Safety Report 20633160 (Version 4)
Quarter: 2022Q2

REPORT INFORMATION
  Report Type: Spontaneous
  Country: US (occurrence: US)
  Receive Date: 20220324
  Receipt Date: 20220520
  Transmission Date: 20220721
  Serious: No
  Sender: FDA-Public Use
  Company Number: US-BAYER-2022A043475

PATIENT
  Age: 20 Year
  Sex: Male

DRUGS (1)
  1. JIVI [Suspect]
     Active Substance: DAMOCTOCOG ALFA PEGOL
     Dosage: 3063 IU, BIW - TWICE A WEEK AND PRN

REACTIONS (3)
  - Drug ineffective [None]
  - Product supply issue [None]
  - Product dose omission issue [None]

NARRATIVE: CASE EVENT DATE: 20220315
